FAERS Safety Report 4463660-5 (Version None)
Quarter: 2004Q4

REPORT INFORMATION
  Report Type: 
  Country: None (occurrence: None)
  Receive Date: 20041001
  Receipt Date: 20040921
  Transmission Date: 20050328
  Serious: Yes (Death)
  Sender: FDA-Public Use
  Company Number: GB-JNJFOC-20040908987

PATIENT

DRUGS (1)
  1. REOPRO [Suspect]
     Indication: ANGIOPLASTY
     Route: 042

REACTIONS (1)
  - SUDDEN DEATH [None]
